FAERS Safety Report 16198042 (Version 1)
Quarter: 2019Q2

REPORT INFORMATION
  Report Type: Spontaneous
  Country: US (occurrence: US)
  Receive Date: 20190312
  Receipt Date: 20190312
  Transmission Date: 20190711
  Serious: Yes (Hospitalization)
  Sender: FDA-Public Use
  Company Number: None

PATIENT
  Age: 8 Month
  Sex: Male

DRUGS (7)
  1. PULMOZYME [Suspect]
     Active Substance: DORNASE ALFA
     Indication: CYSTIC FIBROSIS
     Route: 055
     Dates: start: 20181024
  2. SODIUM CHLORIDE. [Concomitant]
     Active Substance: SODIUM CHLORIDE
  3. COMPLETE FORMULATION [Concomitant]
  4. FLOVENT [Concomitant]
     Active Substance: FLUTICASONE PROPIONATE
  5. CULTURELLO [Concomitant]
  6. VENTOLIN [Concomitant]
     Active Substance: ALBUTEROL SULFATE
  7. ZACTAC [Concomitant]

REACTIONS (1)
  - Rhinovirus infection [None]

NARRATIVE: CASE EVENT DATE: 20190212
